FAERS Safety Report 4530041-5 (Version None)
Quarter: 2004Q4

REPORT INFORMATION
  Report Type: 
  Country: None (occurrence: None)
  Receive Date: 20041215
  Receipt Date: 20041215
  Transmission Date: 20050328
  Serious: Yes (Hospitalization)
  Sender: FDA-Public Use
  Company Number: None

PATIENT
  Sex: Female
  Weight: 136.0791 kg

DRUGS (2)
  1. PAXIL [Suspect]
     Indication: DEPRESSION
     Dosage: 60MG   2X
  2. PAXIL [Suspect]
     Indication: POST-TRAUMATIC SYNDROME
     Dosage: 60MG   2X

REACTIONS (16)
  - ABNORMAL DREAMS [None]
  - BIPOLAR DISORDER [None]
  - DEPENDENCE [None]
  - DEPRESSION [None]
  - DISTURBANCE IN ATTENTION [None]
  - DRUG INEFFECTIVE [None]
  - DRUG WITHDRAWAL SYNDROME [None]
  - FALL [None]
  - FEAR [None]
  - FEELING ABNORMAL [None]
  - HYPOKINESIA [None]
  - MIGRAINE [None]
  - OVERDOSE [None]
  - PAIN [None]
  - PHOTOPHOBIA [None]
  - SUICIDE ATTEMPT [None]
